FAERS Safety Report 23515375 (Version 6)
Quarter: 2025Q3

REPORT INFORMATION
  Report Type: Spontaneous
  Country: JP (occurrence: JP)
  Receive Date: 20240213
  Receipt Date: 20250901
  Transmission Date: 20251020
  Serious: Yes (Hospitalization, Other)
  Sender: BRISTOL-MYERS SQUIBB COMPANY
  Company Number: JP-BRISTOL-MYERS SQUIBB COMPANY-2024-018466

PATIENT
  Age: 76 Year
  Sex: Male
  Weight: 80.5 kg

DRUGS (25)
  1. YERVOY [Suspect]
     Active Substance: IPILIMUMAB
     Indication: Oesophageal carcinoma
     Route: 041
     Dates: start: 20230524, end: 20230524
  2. OPDIVO [Suspect]
     Active Substance: NIVOLUMAB
     Indication: Oesophageal carcinoma
     Route: 041
     Dates: start: 20230524, end: 20230614
  3. PEMETREXED [Suspect]
     Active Substance: PEMETREXED
     Indication: Oesophageal carcinoma
     Dates: start: 202308
  4. PEMETREXED [Suspect]
     Active Substance: PEMETREXED
     Dates: start: 202309
  5. PEMETREXED [Suspect]
     Active Substance: PEMETREXED
     Dates: start: 202309
  6. VONOPRAZAN FUMARATE [Concomitant]
     Active Substance: VONOPRAZAN FUMARATE
     Indication: Product used for unknown indication
     Route: 048
     Dates: start: 20230712
  7. TOVIAZ [Concomitant]
     Active Substance: FESOTERODINE FUMARATE
     Indication: Product used for unknown indication
     Route: 048
  8. MICARDIS [Concomitant]
     Active Substance: TELMISARTAN
     Indication: Product used for unknown indication
     Route: 048
  9. LEVOTHYROXINE SODIUM [Concomitant]
     Active Substance: LEVOTHYROXINE SODIUM
     Indication: Product used for unknown indication
     Route: 048
     Dates: start: 20160823
  10. BISACODYL [Concomitant]
     Active Substance: BISACODYL
     Indication: Product used for unknown indication
  11. AMLODIPINE [Concomitant]
     Active Substance: AMLODIPINE BESYLATE
     Indication: Product used for unknown indication
     Route: 048
     Dates: start: 20190624
  12. MAGNESIUM OXIDE [Concomitant]
     Active Substance: MAGNESIUM OXIDE
     Indication: Product used for unknown indication
     Route: 048
     Dates: start: 20220209
  13. PANTETHINE [Concomitant]
     Active Substance: PANTETHINE
     Indication: Product used for unknown indication
     Route: 048
  14. METHYLCOBALAMIN [Concomitant]
     Active Substance: METHYLCOBALAMIN
     Indication: Product used for unknown indication
     Route: 048
     Dates: start: 20220104
  15. LIMAPROST [Concomitant]
     Active Substance: LIMAPROST
     Indication: Product used for unknown indication
     Route: 048
     Dates: start: 20220511
  16. PREGABALIN [Concomitant]
     Active Substance: PREGABALIN
     Indication: Product used for unknown indication
     Route: 048
     Dates: start: 20230207
  17. FLAVOXATE [Concomitant]
     Active Substance: FLAVOXATE
     Indication: Product used for unknown indication
     Route: 048
  18. PACLITAXEL [Concomitant]
     Active Substance: PACLITAXEL
     Indication: Oesophageal carcinoma
     Dates: start: 202308, end: 202309
  19. ISOTONIC SODIUM CHLORIDE SOLUTION [Concomitant]
     Active Substance: SODIUM CHLORIDE
     Indication: Product used for unknown indication
     Dates: start: 20230614, end: 20230614
  20. ISOTONIC SODIUM CHLORIDE SOLUTION [Concomitant]
     Active Substance: SODIUM CHLORIDE
     Dates: start: 20230705, end: 20230707
  21. ISOTONIC SODIUM CHLORIDE SOLUTION [Concomitant]
     Active Substance: SODIUM CHLORIDE
     Dates: start: 20230524, end: 20230524
  22. SODIUM FERROUS CITRATE [Concomitant]
     Active Substance: SODIUM FERROUS CITRATE
     Indication: Product used for unknown indication
     Route: 048
     Dates: start: 20230712
  23. CALCIUM GLUCONATE\DEXTROSE\MAGNESIUM CHLORIDE\POTASSIUM CHLORIDE\SODIU [Concomitant]
     Active Substance: CALCIUM GLUCONATE\DEXTROSE\MAGNESIUM CHLORIDE\POTASSIUM CHLORIDE\SODIUM ACETATE\SODIUM CHLORIDE\TRIS
     Indication: Product used for unknown indication
     Dates: start: 20230705, end: 20230707
  24. OMEPRAZOLE [Concomitant]
     Active Substance: OMEPRAZOLE
     Indication: Product used for unknown indication
     Dates: start: 20230705, end: 20230707
  25. AMINO ACIDS\DEXTROSE\ELECTROLYTES NOS\VITAMINS [Concomitant]
     Active Substance: AMINO ACIDS\DEXTROSE\ELECTROLYTES NOS\VITAMINS
     Indication: Product used for unknown indication
     Dates: start: 20230706

REACTIONS (3)
  - Aplasia pure red cell [Recovering/Resolving]
  - Immune-mediated lung disease [Recovering/Resolving]
  - Oesophageal carcinoma recurrent [Unknown]

NARRATIVE: CASE EVENT DATE: 20230705
